FAERS Safety Report 5098297-0 (Version None)
Quarter: 2006Q3

REPORT INFORMATION
  Report Type: 
  Country: None (occurrence: None)
  Receive Date: 20060906
  Receipt Date: 20060901
  Transmission Date: 20061208
  Serious: Yes (Other)
  Sender: FDA-Public Use
  Company Number: DE-BOEHRINGER INGELHEIM PHARMACEUTICALS, INC.-2006-DE-04625DE

PATIENT
  Age: 65 Year
  Sex: Male
  Weight: 103 kg

DRUGS (6)
  1. ALNA OCAS [Suspect]
     Indication: MICTURITION DISORDER
     Route: 048
     Dates: start: 20060831
  2. DICLOFENAC [Concomitant]
  3. SOGOON [Concomitant]
  4. MYRRHINIL [Concomitant]
  5. SALVYSAT [Concomitant]
  6. DICLAC [Concomitant]

REACTIONS (4)
  - BRONCHIAL OBSTRUCTION [None]
  - BRONCHITIS [None]
  - DYSPNOEA [None]
  - NASAL CONGESTION [None]
